FAERS Safety Report 9269428 (Version 1)
Quarter: 2013Q2

REPORT INFORMATION
  Report Type: Spontaneous
  Country: BR (occurrence: BR)
  Receive Date: 20130503
  Receipt Date: 20130503
  Transmission Date: 20140414
  Serious: Yes (Other)
  Sender: FDA-Public Use
  Company Number: BR-AMGEN-BRASP2013030940

PATIENT
  Age: 65 Year
  Sex: Female
  Weight: 60 kg

DRUGS (3)
  1. ENBREL [Suspect]
     Indication: RHEUMATOID ARTHRITIS
     Dosage: 25 MG, 2X/WEEK
     Route: 058
     Dates: start: 2010, end: 2012
  2. METICORTEN [Concomitant]
     Dosage: UNK
  3. METHOTREXATE [Concomitant]
     Dosage: UNK

REACTIONS (10)
  - Infarction [Unknown]
  - Cardiomegaly [Unknown]
  - Hypertension [Unknown]
  - Abasia [Unknown]
  - Pyrexia [Unknown]
  - Reflux gastritis [Unknown]
  - Pruritus [Unknown]
  - Nausea [Unknown]
  - Pain [Not Recovered/Not Resolved]
  - Pneumonia [Unknown]
